FAERS Safety Report 7882899-X (Version None)
Quarter: 2011Q4

REPORT INFORMATION
  Report Type: 
  Country: None (occurrence: None)
  Receive Date: 20111101
  Receipt Date: 20110621
  Transmission Date: 20120403
  Serious: No
  Sender: FDA-Public Use
  Company Number: US-AMGEN-TCS366341

PATIENT
  Age: 58 Year
  Sex: Male
  Weight: 73.1 kg

DRUGS (8)
  1. ENBREL [Suspect]
     Indication: PSORIATIC ARTHROPATHY
     Dosage: 50 MG, QWK
     Route: 058
     Dates: start: 20090529, end: 20091019
  2. ENBREL [Suspect]
     Indication: PSORIASIS
  3. NAPROSYN [Concomitant]
  4. METHOTREXATE SODIUM [Suspect]
     Indication: PSORIATIC ARTHROPATHY
     Dosage: 10 MG, QWK
     Route: 048
     Dates: start: 20090529, end: 20090729
  5. ZYRTEC [Concomitant]
  6. MIDRIN                             /00450801/ [Concomitant]
  7. CYMBALTA [Concomitant]
     Dosage: 60 MG, QD
  8. PEPCID [Concomitant]

REACTIONS (4)
  - ALANINE AMINOTRANSFERASE INCREASED [None]
  - DRUG INEFFECTIVE [None]
  - LIVER FUNCTION TEST ABNORMAL [None]
  - HEPATIC PAIN [None]
